FAERS Safety Report 21647645 (Version 2)
Quarter: 2022Q4

REPORT INFORMATION
  Report Type: Spontaneous
  Country: IR (occurrence: IR)
  Receive Date: 20221128
  Receipt Date: 20221212
  Transmission Date: 20230113
  Serious: Yes (Death, Other)
  Sender: FDA-Public Use
  Company Number: IR-NOVOPROD-984372

PATIENT
  Age: 20 Year
  Sex: Male

DRUGS (2)
  1. NORDITROPIN [Suspect]
     Active Substance: SOMATROPIN
     Indication: Medical anabolic therapy
     Dosage: 30 DF
     Route: 058
  2. NORDITROPIN [Suspect]
     Active Substance: SOMATROPIN
     Dosage: 300 MG
     Route: 058

REACTIONS (18)
  - Loss of consciousness [Fatal]
  - Pulmonary embolism [Fatal]
  - Cardio-respiratory arrest [Fatal]
  - Acromegaly [Fatal]
  - Staphylococcal infection [Fatal]
  - Rhabdomyolysis [Fatal]
  - Cardiomyopathy [Fatal]
  - Klebsiella infection [Fatal]
  - Pleural effusion [Fatal]
  - Pneumonia aspiration [Fatal]
  - Intentional overdose [Fatal]
  - Drug abuse [Fatal]
  - Oxygen saturation decreased [Fatal]
  - Hyperthermia [Fatal]
  - Hypertensive crisis [Fatal]
  - Hallucination [Fatal]
  - Product use in unapproved indication [Unknown]
  - Performance enhancing product use [Fatal]
